FAERS Safety Report 6704825-9 (Version None)
Quarter: 2010Q2

REPORT INFORMATION
  Report Type: 
  Country: None (occurrence: None)
  Receive Date: 20100430
  Receipt Date: 20090625
  Transmission Date: 20101027
  Serious: No
  Sender: FDA-Public Use
  Company Number: US-ASTRAZENECA-2009UW17657

PATIENT
  Sex: Female

DRUGS (6)
  1. NEXIUM [Suspect]
     Indication: GASTROOESOPHAGEAL REFLUX DISEASE
     Route: 048
  2. REBIF [Suspect]
     Indication: MULTIPLE SCLEROSIS
     Dates: start: 20050523, end: 20080619
  3. NASONEX [Suspect]
  4. LIODERM PAIN PATCH [Suspect]
     Indication: PAIN
     Route: 062
  5. IRON [Concomitant]
     Indication: ANAEMIA
  6. VITAMIN TAB [Concomitant]

REACTIONS (2)
  - DRUG EXPOSURE DURING PREGNANCY [None]
  - THROMBOCYTOPENIC PURPURA [None]
